FAERS Safety Report 7089897-7 (Version None)
Quarter: 2010Q4

REPORT INFORMATION
  Report Type: 
  Country: None (occurrence: None)
  Receive Date: 20101108
  Receipt Date: 20101101
  Transmission Date: 20110411
  Serious: Yes (Other)
  Sender: FDA-Public Use
  Company Number: US-AMGEN-USASP2010001217

PATIENT

DRUGS (11)
  1. ENBREL [Suspect]
     Indication: ANKYLOSING SPONDYLITIS
     Dosage: 25 MG, Q3MO
     Route: 064
     Dates: start: 20081112, end: 20090811
  2. ENBREL [Suspect]
     Dosage: 25 MG, QWK
     Route: 064
     Dates: start: 20090110, end: 20090811
  3. PRENATAL VITAMINS                  /01549301/ [Concomitant]
     Dosage: UNK UNK, QD
     Route: 064
     Dates: start: 20081112, end: 20090818
  4. IRON [Concomitant]
     Dosage: 29 MG, QD
     Route: 064
     Dates: start: 20081112, end: 20090818
  5. S-ADENOSYL-L-METHIONINE [Concomitant]
     Dosage: 200 MG, UNK
     Route: 064
     Dates: start: 20081112, end: 20090818
  6. TRAMADOL HCL [Concomitant]
     Dosage: 75 MG, QD
     Route: 064
     Dates: start: 20081112, end: 20100515
  7. PHENAZOPYRIDINE HCL TAB [Concomitant]
     Dosage: 600 MG, QD
     Route: 064
     Dates: start: 20081204, end: 20081206
  8. HYDROCODONE BITARTRATE [Concomitant]
     Dosage: QD
     Route: 064
     Dates: start: 20081228, end: 20090818
  9. PEPTO-BISMOL [Concomitant]
     Dosage: UNK UNK, QD
     Route: 064
     Dates: start: 20081227, end: 20090215
  10. TYLENOL (CAPLET) [Concomitant]
     Dosage: UNK UNK, QD
     Route: 064
     Dates: start: 20081112, end: 20090108
  11. TUMS                               /00108001/ [Concomitant]
     Dosage: 4 UNK, UNK
     Route: 064
     Dates: start: 20081230, end: 20090215

REACTIONS (1)
  - ORAL NEOPLASM BENIGN [None]
